FAERS Safety Report 4613221-X (Version None)
Quarter: 2005Q1

REPORT INFORMATION
  Report Type: 
  Country: None (occurrence: None)
  Receive Date: 20050315
  Receipt Date: 20050228
  Transmission Date: 20050727
  Serious: Yes (Other)
  Sender: FDA-Public Use
  Company Number: JP_050205894

PATIENT
  Age: 75 Year
  Sex: Female
  Weight: 47 kg

DRUGS (3)
  1. EVISTA [Suspect]
     Indication: OSTEOPOROSIS POSTMENOPAUSAL
     Dosage: 60 MG/1 DAY
     Dates: start: 20050204, end: 20050208
  2. ALFAROL (ALFACALCIDOL) [Concomitant]
  3. .... [Concomitant]

REACTIONS (4)
  - ABDOMINAL PAIN LOWER [None]
  - ABNORMAL SENSATION IN EYE [None]
  - CHROMATURIA [None]
  - VISUAL ACUITY REDUCED [None]
